FAERS Safety Report 12397632 (Version 1)
Quarter: 2016Q2

REPORT INFORMATION
  Report Type: Spontaneous
  Country: US (occurrence: US)
  Receive Date: 20160524
  Receipt Date: 20160524
  Transmission Date: 20160815
  Serious: No
  Sender: FDA-Public Use
  Company Number: US-BAYER-2016-099053

PATIENT
  Age: 21 Year
  Sex: Male
  Weight: 81.63 kg

DRUGS (1)
  1. CLARITIN [Suspect]
     Active Substance: LORATADINE
     Indication: SEASONAL ALLERGY
     Dosage: 2 DF, ONCE
     Route: 048
     Dates: start: 20160520, end: 20160520

REACTIONS (1)
  - Product use issue [None]

NARRATIVE: CASE EVENT DATE: 20160520
